FAERS Safety Report 7352514-2 (Version None)
Quarter: 2011Q1

REPORT INFORMATION
  Report Type: 
  Country: None (occurrence: None)
  Receive Date: 20110315
  Receipt Date: 20110310
  Transmission Date: 20110831
  Serious: Yes (Life-Threatening, Hospitalization)
  Sender: FDA-Public Use
  Company Number: JP-PFIZER INC-2011053660

PATIENT

DRUGS (1)
  1. SULPERAZON [Suspect]
     Dosage: UNK

REACTIONS (1)
  - SHOCK [None]
